FAERS Safety Report 17910949 (Version 1)
Quarter: 2020Q2

REPORT INFORMATION
  Report Type: Spontaneous
  Country: NL (occurrence: NL)
  Receive Date: 20200618
  Receipt Date: 20200618
  Transmission Date: 20200714
  Serious: Yes (Disabling)
  Sender: FDA-Public Use
  Company Number: NL-AUROBINDO-AUR-APL-2020-029509

PATIENT
  Age: 57 Year
  Sex: Female
  Weight: 68 kg

DRUGS (1)
  1. ACETYLCYSTEINE 600 MG EFFERVESCENT TABLET [Suspect]
     Active Substance: ACETYLCYSTEINE
     Indication: SINUS CONGESTION
     Dosage: 600 MILLIGRAM, ONCE A DAY, (1X PER DAG 1 BRUISTABLET)
     Route: 065
     Dates: start: 20191203, end: 20191208

REACTIONS (1)
  - Tinnitus [Not Recovered/Not Resolved]

NARRATIVE: CASE EVENT DATE: 20191208
